FAERS Safety Report 25651068 (Version 1)
Quarter: 2025Q3

REPORT INFORMATION
  Report Type: Spontaneous
  Country: US (occurrence: None)
  Receive Date: 20250806
  Receipt Date: 20250806
  Transmission Date: 20251021
  Serious: Yes (unspecified)
  Sender: FDA-CTU
  Company Number: None

PATIENT
  Age: 3 Year
  Sex: Male

DRUGS (1)
  1. .DELTA.9-TETRAHYDROCANNABINOL\CANNABIDIOL\HERBALS [Suspect]
     Active Substance: .DELTA.9-TETRAHYDROCANNABINOL\CANNABIDIOL\HERBALS

REACTIONS (6)
  - Self-medication [None]
  - Substance use [None]
  - Overdose [None]
  - Lethargy [None]
  - Sedation [None]
  - Product administered to patient of inappropriate age [None]

NARRATIVE: CASE EVENT DATE: 20250626
